FAERS Safety Report 20864863 (Version 1)
Quarter: 2022Q2

REPORT INFORMATION
  Report Type: Spontaneous
  Country: FR (occurrence: FR)
  Receive Date: 20220524
  Receipt Date: 20220524
  Transmission Date: 20220721
  Serious: Yes (Disabling, Congenital Anomaly, Other)
  Sender: FDA-Public Use
  Company Number: FR-ABBVIE-22K-056-4407483-00

PATIENT
  Sex: Female

DRUGS (2)
  1. VALPROATE SODIUM [Suspect]
     Active Substance: VALPROATE SODIUM
     Indication: Maternal exposure timing unspecified
     Route: 064
  2. FOLIC ACID [Concomitant]
     Active Substance: FOLIC ACID
     Indication: Maternal exposure timing unspecified

REACTIONS (14)
  - Arachnodactyly [Unknown]
  - Blindness congenital [Unknown]
  - Microphthalmos [Unknown]
  - Disability [Unknown]
  - Camptodactyly congenital [Unknown]
  - Limb asymmetry [Unknown]
  - Limb reduction defect [Unknown]
  - Congenital eye disorder [Unknown]
  - Cleft palate [Unknown]
  - Blepharophimosis [Unknown]
  - Eyelid ptosis congenital [Unknown]
  - Coloboma [Unknown]
  - Craniofacial deformity [Unknown]
  - Foetal exposure during pregnancy [Unknown]
